FAERS Safety Report 10065666 (Version 1)
Quarter: 2014Q2

REPORT INFORMATION
  Report Type: Spontaneous
  Country: US (occurrence: US)
  Receive Date: 20140408
  Receipt Date: 20140408
  Transmission Date: 20141212
  Serious: No
  Sender: FDA-Public Use
  Company Number: US-PFIZER INC-2014095449

PATIENT
  Age: 76 Year
  Sex: Male
  Weight: 92.97 kg

DRUGS (1)
  1. GABAPENTIN [Suspect]
     Indication: NEUROPATHY PERIPHERAL
     Dosage: 300 MG IN THE MORNING AND 900 MG AT NIGHT, 2X/DAY
     Dates: start: 2012, end: 201403

REACTIONS (1)
  - Drug ineffective [Unknown]
